FAERS Safety Report 5655016-4 (Version None)
Quarter: 2008Q1

REPORT INFORMATION
  Report Type: 
  Country: None (occurrence: None)
  Receive Date: 20080307
  Receipt Date: 20071024
  Transmission Date: 20080703
  Serious: No
  Sender: FDA-Public Use
  Company Number: A0689067A

PATIENT
  Age: 73 Year
  Sex: Female

DRUGS (1)
  1. REQUIP [Suspect]
     Indication: PARKINSONISM
     Dosage: 2MG THREE TIMES PER DAY
     Route: 048

REACTIONS (4)
  - APATHY [None]
  - GAMBLING [None]
  - PSYCHIATRIC SYMPTOM [None]
  - QUALITY OF LIFE DECREASED [None]
